FAERS Safety Report 24183671 (Version 4)
Quarter: 2024Q4

REPORT INFORMATION
  Report Type: Spontaneous
  Country: US (occurrence: US)
  Receive Date: 20240807
  Receipt Date: 20241122
  Transmission Date: 20250115
  Serious: No
  Sender: PFIZER
  Company Number: US-PFIZER INC-202400228896

PATIENT
  Age: 72 Year
  Sex: Male
  Weight: 58.06 kg

DRUGS (3)
  1. GENOTROPIN [Suspect]
     Active Substance: SOMATROPIN
     Indication: Insulin-like growth factor decreased
     Dosage: 0.4 PER DAY, 6 DAYS A WEEK
     Route: 058
     Dates: start: 202304
  2. GENOTROPIN [Suspect]
     Active Substance: SOMATROPIN
     Indication: Klinefelter^s syndrome
     Dosage: 0.4 MG, DAILY, 7 DAYS/WEEK
  3. GENOTROPIN [Suspect]
     Active Substance: SOMATROPIN
     Indication: Hypogonadism male

REACTIONS (3)
  - Device breakage [Unknown]
  - Poor quality device used [Unknown]
  - Drug dose omission by device [Unknown]
